FAERS Safety Report 18696732 (Version 1)
Quarter: 2021Q1

REPORT INFORMATION
  Report Type: Spontaneous
  Country: GB (occurrence: GB)
  Receive Date: 20210104
  Receipt Date: 20210104
  Transmission Date: 20210419
  Serious: Yes (Other)
  Sender: FDA-Public Use
  Company Number: GB-PFIZER INC-2020517614

PATIENT
  Age: 82 Year
  Sex: Male
  Weight: 62 kg

DRUGS (12)
  1. PRAVASTATIN. [Suspect]
     Active Substance: PRAVASTATIN
     Dosage: 10 MG
  2. MORPHINE [Suspect]
     Active Substance: MORPHINE
     Indication: RESPIRATORY DISORDER
     Dosage: 5 MG
  3. DESLORATADINE. [Suspect]
     Active Substance: DESLORATADINE
     Dosage: 5 MG
  4. AZITHROMYCIN ANHYDROUS. [Suspect]
     Active Substance: AZITHROMYCIN ANHYDROUS
     Dosage: 250 MG, NEBULISER
  5. SALINE [SODIUM CHLORIDE] [Suspect]
     Active Substance: SODIUM CHLORIDE
     Indication: RESPIRATORY DISORDER
     Dosage: 4 ML
  6. LORAZEPAM. [Suspect]
     Active Substance: LORAZEPAM
     Dosage: 0.5 MG
  7. COLOMYCIN [COLISTIN SULFATE] [Suspect]
     Active Substance: COLISTIN SULFATE
     Indication: RESPIRATORY DISORDER
     Dosage: UNK, 1 MILLION, NEBULISER
  8. ORAMORPH SR SUSTAINED RELEASE [Suspect]
     Active Substance: MORPHINE SULFATE
     Dosage: 2 ML, PROLONGED RELEASE
  9. SALBUTAMOL [Suspect]
     Active Substance: ALBUTEROL
     Indication: RESPIRATORY DISORDER
     Dosage: 2.5 ML
  10. AMITRIPTYLINE [Suspect]
     Active Substance: AMITRIPTYLINE
     Dosage: 20 MG
  11. LOSARTAN. [Suspect]
     Active Substance: LOSARTAN
     Dosage: 75 MG
  12. TOZINAMERAN. [Suspect]
     Active Substance: TOZINAMERAN
     Indication: COVID-19 IMMUNISATION
     Dosage: SINGLE DOSE
     Dates: start: 20201216, end: 20201216

REACTIONS (2)
  - Dizziness [Recovered/Resolved]
  - Vertigo [Recovered/Resolved]

NARRATIVE: CASE EVENT DATE: 20201216
